FAERS Safety Report 6631335-X (Version None)
Quarter: 2010Q1

REPORT INFORMATION
  Report Type: 
  Country: None (occurrence: None)
  Receive Date: 20100312
  Receipt Date: 20100304
  Transmission Date: 20100710
  Serious: Yes (Death)
  Sender: FDA-Public Use
  Company Number: US-JNJFOC-20090808374

PATIENT
  Sex: Male
  Weight: 68.04 kg

DRUGS (7)
  1. FENTANYL-100 [Suspect]
     Indication: PROCEDURAL PAIN
     Route: 062
  2. ROXICET [Concomitant]
     Indication: OROPHARYNGEAL PAIN
     Route: 065
  3. PERCOCET [Concomitant]
     Indication: OROPHARYNGEAL PAIN
     Route: 065
  4. LIDOCAINE [Concomitant]
  5. HYDROCODONE [Concomitant]
  6. OXYCODONE [Concomitant]
  7. ACETAMINOPHEN [Concomitant]

REACTIONS (3)
  - DRUG PRESCRIBING ERROR [None]
  - NARCOTIC INTOXICATION [None]
  - OFF LABEL USE [None]
